FAERS Safety Report 26205620 (Version 1)
Quarter: 2025Q4

REPORT INFORMATION
  Report Type: Spontaneous
  Country: CA (occurrence: CA)
  Receive Date: 20251229
  Receipt Date: 20251229
  Transmission Date: 20260118
  Serious: Yes (Hospitalization, Other)
  Sender: Kenvue
  Company Number: CA-KENVUE-20251208644

PATIENT
  Age: 75 Year

DRUGS (4)
  1. ACETAMINOPHEN [Interacting]
     Active Substance: ACETAMINOPHEN
     Indication: Product used for unknown indication
     Route: 065
  2. HYDROMORPHONE [Interacting]
     Active Substance: HYDROMORPHONE
     Indication: Product used for unknown indication
     Dosage: CAPSULE, SUSTAINED RELEASE 9.0 MILLIGRAM, TWICE A DAY (2 EVERY 1 DAYS)
     Route: 061
  3. HYDROMORPHONE HYDROCHLORIDE [Interacting]
     Active Substance: HYDROMORPHONE HYDROCHLORIDE
     Indication: Product used for unknown indication
     Dosage: 2 MILLIGRAM, EVERY 2 HOUR ( 1 EVERY 2 HOURS)
     Route: 061
  4. PREGABALIN [Interacting]
     Active Substance: PREGABALIN
     Indication: Product used for unknown indication
     Route: 065

REACTIONS (4)
  - Fall [Recovered/Resolved]
  - Labelled drug-drug interaction issue [Recovered/Resolved]
  - Inappropriate schedule of product administration [Recovered/Resolved]
  - Toxicity to various agents [Recovered/Resolved]
